FAERS Safety Report 9747307 (Version 1)
Quarter: 2013Q4

REPORT INFORMATION
  Report Type: Spontaneous
  Country: US (occurrence: US)
  Receive Date: 20131212
  Receipt Date: 20131212
  Transmission Date: 20140711
  Serious: Yes (Hospitalization, Other)
  Sender: FDA-Public Use
  Company Number: US-BAXTER-2013BAX048585

PATIENT
  Sex: Male

DRUGS (2)
  1. DIANEAL LOW CALCIUM [Suspect]
     Indication: PERITONEAL DIALYSIS
     Route: 033
     Dates: start: 201301, end: 201311
  2. EXTRANEAL [Suspect]
     Indication: PERITONEAL DIALYSIS
     Route: 033
     Dates: start: 201301, end: 201311

REACTIONS (10)
  - Diabetic complication [Recovering/Resolving]
  - Disease complication [Recovering/Resolving]
  - Blood glucose abnormal [Unknown]
  - Cerebrovascular accident [Recovering/Resolving]
  - Blood glucose increased [Recovering/Resolving]
  - Blood glucose decreased [Recovering/Resolving]
  - Peritonitis [Recovered/Resolved]
  - Hypertension [Recovering/Resolving]
  - Hypotension [Recovering/Resolving]
  - Catheter site infection [Recovering/Resolving]
